FAERS Safety Report 12466588 (Version 1)
Quarter: 2016Q2

REPORT INFORMATION
  Report Type: Spontaneous
  Country: US (occurrence: US)
  Receive Date: 20160615
  Receipt Date: 20160615
  Transmission Date: 20160815
  Serious: No
  Sender: FDA-Public Use
  Company Number: US-ASTRAZENECA-2016SE40154

PATIENT
  Age: 702 Month
  Sex: Male
  Weight: 95.3 kg

DRUGS (11)
  1. LISINOPRIL. [Suspect]
     Active Substance: LISINOPRIL
     Indication: BLOOD PRESSURE ABNORMAL
     Route: 048
     Dates: start: 2013
  2. METFORMIN [Concomitant]
     Active Substance: METFORMIN HYDROCHLORIDE
     Indication: TYPE 2 DIABETES MELLITUS
     Route: 048
     Dates: start: 2012
  3. ASTROBAN [Concomitant]
     Indication: BLOOD CHOLESTEROL ABNORMAL
     Route: 048
     Dates: start: 201602
  4. BUPROPRION [Concomitant]
     Active Substance: BUPROPION
     Indication: TREMOR
     Route: 048
     Dates: start: 2013
  5. TOPROL XL [Suspect]
     Active Substance: METOPROLOL SUCCINATE
     Indication: TREMOR
     Route: 048
     Dates: start: 2013
  6. METAXOLONE [Concomitant]
     Active Substance: METAXALONE
     Indication: BACK PAIN
     Dosage: 800.0MG AS REQUIRED
     Route: 048
     Dates: start: 2010
  7. IBIPROPHIN [Concomitant]
     Indication: BACK PAIN
     Dosage: 600.0MG AS REQUIRED
     Route: 048
     Dates: start: 2010
  8. BYDUREON [Suspect]
     Active Substance: EXENATIDE
     Indication: TYPE 2 DIABETES MELLITUS
     Route: 058
     Dates: start: 201603
  9. LORAZAPAM [Concomitant]
     Active Substance: LORAZEPAM
     Indication: ANXIETY
     Dosage: 1.0MG AS REQUIRED
     Route: 048
     Dates: start: 2002
  10. METAXOLONE [Concomitant]
     Active Substance: METAXALONE
     Indication: INJURY
     Dosage: 800.0MG AS REQUIRED
     Route: 048
     Dates: start: 2010
  11. IBIPROPHIN [Concomitant]
     Indication: BACK INJURY
     Dosage: 600.0MG AS REQUIRED
     Route: 048
     Dates: start: 2010

REACTIONS (5)
  - Intentional product misuse [Unknown]
  - Pruritus [Unknown]
  - Rash [Unknown]
  - Injection site nodule [Unknown]
  - Injection site urticaria [Unknown]

NARRATIVE: CASE EVENT DATE: 201603
